FAERS Safety Report 6712895-7 (Version None)
Quarter: 2010Q2

REPORT INFORMATION
  Report Type: 
  Country: None (occurrence: None)
  Receive Date: 20100506
  Receipt Date: 20100503
  Transmission Date: 20101027
  Serious: Yes (Hospitalization)
  Sender: FDA-Public Use
  Company Number: US-B.I. PHARMACEUTICALS,INC./RIDGEFIELD-2010-BP-05039BP

PATIENT
  Age: 69 Year
  Sex: Male

DRUGS (3)
  1. SPIRIVA [Suspect]
     Indication: DYSPNOEA
     Dosage: 18 MCG
     Route: 055
     Dates: start: 20090101
  2. ADVAIR DISKUS 100/50 [Concomitant]
     Indication: DYSPNOEA
  3. HYDROCHLOROTHIAZIDE [Concomitant]
     Indication: HYPERTENSION

REACTIONS (8)
  - BLOOD CHOLESTEROL INCREASED [None]
  - CAROTID ARTERY OCCLUSION [None]
  - DYSPHAGIA [None]
  - GASTRIC DISORDER [None]
  - HAEMATEMESIS [None]
  - HICCUPS [None]
  - HYPERTENSION [None]
  - PERIPHERAL ARTERIAL OCCLUSIVE DISEASE [None]
